FAERS Safety Report 23140436 (Version 1)
Quarter: 2023Q4

REPORT INFORMATION
  Report Type: Spontaneous
  Country: DE (occurrence: DE)
  Receive Date: 20231102
  Receipt Date: 20231102
  Transmission Date: 20240110
  Serious: Yes (Other)
  Sender: FDA-Public Use
  Company Number: DE-JNJFOC-20221043622

PATIENT
  Age: 71 Year
  Sex: Female
  Weight: 66 kg

DRUGS (17)
  1. DEXAMETHASONE [Suspect]
     Active Substance: DEXAMETHASONE
     Indication: Plasma cell myeloma
     Dosage: 20.000MG
     Route: 048
     Dates: start: 20221027
  2. DEXAMETHASONE [Suspect]
     Active Substance: DEXAMETHASONE
     Dosage: 20.000MG
     Route: 048
     Dates: start: 20221103
  3. DEXAMETHASONE [Suspect]
     Active Substance: DEXAMETHASONE
     Dosage: 4/CYCLE
     Route: 048
     Dates: start: 20221006
  4. DEXAMETHASONE [Suspect]
     Active Substance: DEXAMETHASONE
     Dosage: 4/CYCLE
     Route: 048
     Dates: start: 20221013
  5. DARATUMUMAB [Suspect]
     Active Substance: DARATUMUMAB
     Indication: Plasma cell myeloma
     Dosage: 1800.000MG
     Route: 058
     Dates: start: 20221006
  6. DARATUMUMAB [Suspect]
     Active Substance: DARATUMUMAB
     Dosage: 1800.000MG
     Route: 058
     Dates: start: 20221013
  7. DARATUMUMAB [Suspect]
     Active Substance: DARATUMUMAB
     Dosage: 1800.000MG
     Route: 058
     Dates: start: 20221027
  8. DARATUMUMAB [Suspect]
     Active Substance: DARATUMUMAB
     Dosage: 1800.000MG
     Route: 058
     Dates: start: 20221103
  9. LENALIDOMIDE [Suspect]
     Active Substance: LENALIDOMIDE
     Indication: Plasma cell myeloma
     Dosage: 25.000MG
     Route: 048
     Dates: start: 20221006, end: 20221020
  10. ACYCLOVIR [Concomitant]
     Active Substance: ACYCLOVIR
     Indication: Prophylaxis
     Dosage: 400.000MG
     Route: 048
     Dates: start: 20221005
  11. CLEMASTINE [Concomitant]
     Active Substance: CLEMASTINE
     Indication: Prophylaxis
     Dosage: 2.000MG
     Route: 042
  12. LUPENOX [Concomitant]
     Indication: Prophylaxis
     Dosage: 400.000DF QD
     Route: 058
     Dates: start: 20221005
  13. NEULASTA [Concomitant]
     Active Substance: PEGFILGRASTIM
     Indication: Prophylaxis
     Dosage: 6.000MG QD
     Route: 058
     Dates: start: 20221020, end: 20221020
  14. ACETAMINOPHEN [Concomitant]
     Active Substance: ACETAMINOPHEN
     Indication: Prophylaxis
     Dosage: 500.000MG
     Route: 048
     Dates: start: 20221005
  15. PREDNISONE [Concomitant]
     Active Substance: PREDNISONE
     Indication: Prophylaxis
     Dosage: 150.000MG
     Route: 042
     Dates: start: 20221005
  16. PROLIA [Concomitant]
     Active Substance: DENOSUMAB
     Indication: Prophylaxis
     Dosage: 120.000MG
     Route: 042
     Dates: start: 20221005
  17. Vigantol [Concomitant]
     Indication: Prophylaxis
     Dosage: 20000.000DF
     Route: 048
     Dates: start: 20220822

REACTIONS (3)
  - Leukopenia [Recovered/Resolved]
  - Hypertension [Recovered/Resolved]
  - Dizziness [Recovered/Resolved]

NARRATIVE: CASE EVENT DATE: 20221020
